FAERS Safety Report 7530693-1 (Version None)
Quarter: 2011Q2

REPORT INFORMATION
  Report Type: 
  Country: None (occurrence: None)
  Receive Date: 20110607
  Receipt Date: 20110523
  Transmission Date: 20111010
  Serious: Yes (Hospitalization)
  Sender: FDA-Public Use
  Company Number: TW-WATSON-2011-07642

PATIENT
  Age: 42 Year
  Sex: Male

DRUGS (4)
  1. QUETIAPINE FUMARATE [Suspect]
     Indication: PRODUCT USED FOR UNKNOWN INDICATION
     Dosage: 600-800 MG, DAILY
  2. ARIPIPRAZOLE [Suspect]
     Indication: SCHIZOPHRENIA
     Dosage: 10 MG, DAILY
  3. FLUOXETINE HCL [Suspect]
     Indication: OBSESSIVE-COMPULSIVE DISORDER
     Dosage: 60-80 MG, DAILY
  4. RISPERIDONE [Suspect]
     Indication: PRODUCT USED FOR UNKNOWN INDICATION
     Dosage: 2-4 MG, DAILY

REACTIONS (5)
  - NEUTROPENIA [None]
  - HALLUCINATION [None]
  - LEUKOPENIA [None]
  - PSYCHIATRIC SYMPTOM [None]
  - MEDICATION ERROR [None]
